FAERS Safety Report 6028815-7 (Version None)
Quarter: 2009Q1

REPORT INFORMATION
  Report Type: 
  Country: None (occurrence: None)
  Receive Date: 20090105
  Receipt Date: 20090105
  Transmission Date: 20090719
  Serious: No
  Sender: FDA-Public Use
  Company Number: None

PATIENT
  Age: 62 Year
  Sex: Male
  Weight: 94.8 kg

DRUGS (1)
  1. CEFUROXIME [Suspect]
     Indication: CELLULITIS
     Dosage: 500 MG BID PO
     Route: 048
     Dates: start: 20081207, end: 20081209

REACTIONS (1)
  - RASH [None]
